FAERS Safety Report 9214966 (Version 1)
Quarter: 2013Q2

REPORT INFORMATION
  Report Type: Spontaneous
  Country: BR (occurrence: BR)
  Receive Date: 20130405
  Receipt Date: 20130405
  Transmission Date: 20140414
  Serious: Yes (Other)
  Sender: FDA-Public Use
  Company Number: BR-BRISTOL-MYERS SQUIBB COMPANY-18728725

PATIENT
  Age: 62 Year
  Sex: Female

DRUGS (2)
  1. ONGLYZA TABS 5 MG [Suspect]
     Indication: DIABETES MELLITUS
     Route: 048
  2. GLIFAGE [Suspect]
     Indication: DIABETES MELLITUS
     Dosage: 2 TABLETS IN THE MORNING AND 2 TABLETS IN THE AFTERNOON

REACTIONS (3)
  - Fall [Unknown]
  - Limb injury [Unknown]
  - Gait disturbance [Unknown]
